APPROVED DRUG PRODUCT: CASPOFUNGIN ACETATE
Active Ingredient: CASPOFUNGIN ACETATE
Strength: 70MG/VIAL
Dosage Form/Route: POWDER;INTRAVENOUS
Application: A207650 | Product #002
Applicant: PHARMOBEDIENT CONSULTING LLC
Approved: Sep 29, 2017 | RLD: No | RS: No | Type: DISCN